FAERS Safety Report 7971194-6 (Version None)
Quarter: 2011Q4

REPORT INFORMATION
  Report Type: 
  Country: None (occurrence: None)
  Receive Date: 20111212
  Receipt Date: 20111207
  Transmission Date: 20120403
  Serious: Yes (Death, Hospitalization)
  Sender: FDA-Public Use
  Company Number: TW-ABBOTT-11P-153-0866089-00

PATIENT
  Weight: 67 kg

DRUGS (3)
  1. HUMIRA [Suspect]
     Indication: PSORIATIC ARTHROPATHY
  2. HUMIRA [Suspect]
     Indication: RHEUMATOID ARTHRITIS
     Route: 058
     Dates: start: 20110323, end: 20110426
  3. CYCLOPHOSPHAMIDE [Concomitant]
     Indication: PRODUCT USED FOR UNKNOWN INDICATION
     Dates: start: 20101119, end: 20110524

REACTIONS (17)
  - LYMPHADENOPATHY [None]
  - OEDEMA PERIPHERAL [None]
  - PYREXIA [None]
  - ARTHRALGIA [None]
  - RASH [None]
  - OEDEMA [None]
  - WEIGHT INCREASED [None]
  - PAIN IN EXTREMITY [None]
  - LUNG INFECTION [None]
  - HYPERSENSITIVITY [None]
  - JOINT RANGE OF MOTION DECREASED [None]
  - MALAISE [None]
  - JOINT STIFFNESS [None]
  - PRURITUS [None]
  - JOINT SWELLING [None]
  - DECREASED APPETITE [None]
  - ARTHRITIS [None]
